FAERS Safety Report 8087776-X (Version None)
Quarter: 2012Q1

REPORT INFORMATION
  Report Type: 
  Country: None (occurrence: None)
  Receive Date: 20120128
  Receipt Date: 20110601
  Transmission Date: 20120608
  Serious: No
  Sender: FDA-Public Use
  Company Number: US-ABBOTT-11P-163-0730414-00

PATIENT
  Sex: Male
  Weight: 86.26 kg

DRUGS (5)
  1. ATENOLOL [Concomitant]
     Indication: HYPERTENSION
  2. NEXIUM [Concomitant]
     Indication: GASTROOESOPHAGEAL REFLUX DISEASE
  3. INDOMETHACIN [Concomitant]
     Indication: ANKYLOSING SPONDYLITIS
  4. HUMIRA [Suspect]
     Indication: ANKYLOSING SPONDYLITIS
     Dates: start: 20080101, end: 20110301
  5. LISINOPRIL [Concomitant]
     Indication: HYPERTENSION

REACTIONS (1)
  - UPPER RESPIRATORY TRACT INFECTION [None]
